FAERS Safety Report 18176051 (Version 2)
Quarter: 2020Q3

REPORT INFORMATION
  Report Type: Spontaneous
  Country: US (occurrence: US)
  Receive Date: 20200820
  Receipt Date: 20200911
  Transmission Date: 20201103
  Serious: No
  Sender: FDA-Public Use
  Company Number: US-ASTRAZENECA-2020SF02876

PATIENT
  Age: 31074 Day
  Sex: Male
  Weight: 78 kg

DRUGS (1)
  1. BYDUREON [Suspect]
     Active Substance: EXENATIDE
     Indication: DIABETES MELLITUS
     Route: 058

REACTIONS (5)
  - Device malfunction [Unknown]
  - Incorrect dose administered by device [Unknown]
  - Intentional device misuse [Not Recovered/Not Resolved]
  - Injection site pain [Unknown]
  - Injection site extravasation [Unknown]

NARRATIVE: CASE EVENT DATE: 20200804
